FAERS Safety Report 5728203-4 (Version None)
Quarter: 2008Q2

REPORT INFORMATION
  Report Type: 
  Country: None (occurrence: None)
  Receive Date: 20080506
  Receipt Date: 20080428
  Transmission Date: 20081010
  Serious: Yes (Hospitalization)
  Sender: FDA-Public Use
  Company Number: GB-RANBAXY-2008RR-14748

PATIENT
  Age: 12 Year
  Sex: Female
  Weight: 46 kg

DRUGS (3)
  1. IBUPROFEN TABLETS BP 200MG [Suspect]
     Dosage: 300 MG, BID
     Route: 048
     Dates: start: 20080329, end: 20080402
  2. CHLORPHENIRAMINE MALEATE [Concomitant]
     Indication: PRURITUS
     Dosage: 4 MG, QD
     Route: 048
     Dates: start: 20080328, end: 20080331
  3. PARACETAMOL [Concomitant]
     Indication: PYREXIA
     Dosage: 500 MG, UNK
     Route: 048
     Dates: start: 20080327, end: 20080402

REACTIONS (1)
  - RENAL FAILURE ACUTE [None]
